FAERS Safety Report 17756320 (Version 1)
Quarter: 2020Q2

REPORT INFORMATION
  Report Type: Spontaneous
  Country: FR (occurrence: FR)
  Receive Date: 20200507
  Receipt Date: 20200507
  Transmission Date: 20200714
  Serious: Yes (Death)
  Sender: FDA-Public Use
  Company Number: FR-TEVA-2020-FR-1230763

PATIENT
  Age: 73 Year
  Sex: Female
  Weight: 85 kg

DRUGS (13)
  1. ALPRAZOLAM. [Suspect]
     Active Substance: ALPRAZOLAM
     Route: 065
  2. KARDEGIC [Interacting]
     Active Substance: ASPIRIN DL-LYSINE
     Route: 065
  3. LORMETAZEPAM [Concomitant]
     Active Substance: LORMETAZEPAM
  4. AMIODARONE [Concomitant]
     Active Substance: AMIODARONE
  5. PANTOPRAZOLE [Concomitant]
     Active Substance: PANTOPRAZOLE
  6. BISOPROLOL (FUMARATE ACIDE DE) [Concomitant]
     Active Substance: BISOPROLOL FUMARATE
  7. MIRTAZAPINE. [Concomitant]
     Active Substance: MIRTAZAPINE
  8. METFORMINE [Interacting]
     Active Substance: METFORMIN HYDROCHLORIDE
     Indication: TYPE 2 DIABETES MELLITUS
     Dosage: UNKNOWN
     Route: 048
     Dates: start: 20200202, end: 20200203
  9. LEVOTHYROX [Interacting]
     Active Substance: LEVOTHYROXINE
     Route: 065
  10. JANUMET [Interacting]
     Active Substance: METFORMIN HYDROCHLORIDE\SITAGLIPTIN PHOSPHATE
     Indication: TYPE 2 DIABETES MELLITUS
     Dosage: 2 DOSAGE FORMS
     Route: 048
     Dates: end: 20200130
  11. OPTIJECT [Interacting]
     Active Substance: IOVERSOL
     Indication: COMPUTERISED TOMOGRAM ABDOMEN
     Dosage: 1 DOSAGE FORMS
     Route: 042
     Dates: start: 20200130, end: 20200130
  12. TELMISARTAN. [Concomitant]
     Active Substance: TELMISARTAN
  13. METFORMINE [Interacting]
     Active Substance: METFORMIN HYDROCHLORIDE
     Dosage: 1000 MG
     Route: 048
     Dates: start: 20200130

REACTIONS (3)
  - Toxicity to various agents [Fatal]
  - Drug interaction [Unknown]
  - Lactic acidosis [Fatal]

NARRATIVE: CASE EVENT DATE: 20200203
